FAERS Safety Report 19885805 (Version 2)
Quarter: 2021Q3

REPORT INFORMATION
  Report Type: Spontaneous
  Country: IT (occurrence: IT)
  Receive Date: 20210927
  Receipt Date: 20210930
  Transmission Date: 20211014
  Serious: Yes (Hospitalization)
  Sender: FDA-Public Use
  Company Number: IT-ACCORD-239689

PATIENT
  Age: 4 Year
  Sex: Male

DRUGS (5)
  1. RICHTER [Concomitant]
     Indication: HYPERSENSITIVITY
     Route: 042
     Dates: start: 20210527, end: 20210527
  2. CARBOPLATIN. [Suspect]
     Active Substance: CARBOPLATIN
     Indication: ASTROCYTOMA
     Route: 042
     Dates: start: 20210527, end: 20210527
  3. TRIMETHOPRIM. [Concomitant]
     Active Substance: TRIMETHOPRIM
     Route: 042
  4. ANTRA [Concomitant]
     Active Substance: OMEPRAZOLE
     Route: 048
  5. ZOFRAN [Concomitant]
     Active Substance: ONDANSETRON HYDROCHLORIDE
     Route: 042

REACTIONS (5)
  - Pyrexia [Recovering/Resolving]
  - Rash [Unknown]
  - Headache [Recovering/Resolving]
  - Off label use [Unknown]
  - Hypersensitivity [Unknown]

NARRATIVE: CASE EVENT DATE: 20210528
